FAERS Safety Report 9902364 (Version 2)
Quarter: 2014Q1

REPORT INFORMATION
  Report Type: Spontaneous
  Country: US (occurrence: US)
  Receive Date: 20140217
  Receipt Date: 20140217
  Transmission Date: 20141002
  Serious: No
  Sender: FDA-Public Use
  Company Number: US-GILEAD-2011-0044441

PATIENT
  Sex: Female

DRUGS (5)
  1. LETAIRIS [Suspect]
     Indication: PULMONARY HYPERTENSION
     Dosage: 5 MG, UNK
     Route: 048
     Dates: start: 20110829, end: 201108
  2. LETAIRIS [Suspect]
     Indication: CONNECTIVE TISSUE DISORDER
  3. PREDNISONE [Concomitant]
  4. FENTANYL [Concomitant]
  5. REVATIO [Concomitant]

REACTIONS (5)
  - Malaise [Unknown]
  - Erythema [Unknown]
  - Burning sensation [Unknown]
  - Hypersensitivity [Unknown]
  - Flushing [Unknown]
